FAERS Safety Report 21566829 (Version 1)
Quarter: 2022Q4

REPORT INFORMATION
  Report Type: Spontaneous
  Country: US (occurrence: US)
  Receive Date: 20221108
  Receipt Date: 20221108
  Transmission Date: 20230113
  Serious: Yes (Other)
  Sender: FDA-Public Use
  Company Number: US-BAYER-2022A152306

PATIENT
  Age: 88 Year
  Sex: Female

DRUGS (3)
  1. CORICIDIN HBP MAXIMUM STRENGTH NIGHTTIME COLD AND FLU [Suspect]
     Active Substance: ACETAMINOPHEN\DEXTROMETHORPHAN HYDROBROMIDE\DOXYLAMINE SUCCINATE
     Indication: Sleep disorder
     Dosage: 1 TEASPOON
     Route: 048
     Dates: start: 20221027, end: 20221027
  2. CORICIDIN HBP MAXIMUM STRENGTH COLD, COUGH AND FLU [Suspect]
     Active Substance: ACETAMINOPHEN\DEXTROMETHORPHAN HYDROBROMIDE\GUAIFENESIN
     Indication: Sleep disorder
     Dosage: UNK UNK, QD (TEASPOON EVERY DAY)
     Route: 048
  3. TYLENOL [Concomitant]
     Active Substance: ACETAMINOPHEN

REACTIONS (6)
  - Choking [None]
  - Throat irritation [None]
  - Insomnia [None]
  - Dyspnoea [None]
  - Oropharyngeal pain [None]
  - Product use in unapproved indication [None]

NARRATIVE: CASE EVENT DATE: 20221027
